FAERS Safety Report 17095050 (Version 1)
Quarter: 2019Q4

REPORT INFORMATION
  Report Type: Spontaneous
  Country: GB (occurrence: GB)
  Receive Date: 20191130
  Receipt Date: 20191130
  Transmission Date: 20200122
  Serious: Yes (Other)
  Sender: FDA-Public Use
  Company Number: GB-ACCORD-162438

PATIENT
  Age: 33 Year
  Sex: Male
  Weight: 115 kg

DRUGS (1)
  1. DOXAZOSIN [Suspect]
     Active Substance: DOXAZOSIN MESYLATE
     Indication: HYPERTENSION
     Route: 048
     Dates: start: 20160101, end: 20191031

REACTIONS (2)
  - Ear pain [Not Recovered/Not Resolved]
  - Ear swelling [Not Recovered/Not Resolved]

NARRATIVE: CASE EVENT DATE: 20170410
